FAERS Safety Report 18655012 (Version 1)
Quarter: 2020Q4

REPORT INFORMATION
  Report Type: Spontaneous
  Country: DK (occurrence: DK)
  Receive Date: 20201223
  Receipt Date: 20201223
  Transmission Date: 20210114
  Serious: Yes (Life-Threatening, Hospitalization)
  Sender: FDA-Public Use
  Company Number: DK-TEVA-2020-DK-1861008

PATIENT
  Age: 54 Year
  Sex: Female

DRUGS (7)
  1. CHLORDIAZEPOXIDE. [Interacting]
     Active Substance: CHLORDIAZEPOXIDE
     Dosage: DAY 6
     Route: 065
  2. CHLORDIAZEPOXIDE. [Interacting]
     Active Substance: CHLORDIAZEPOXIDE
     Dosage: DAY 7
     Route: 065
  3. CHLORDIAZEPOXIDE. [Suspect]
     Active Substance: CHLORDIAZEPOXIDE
     Indication: ALCOHOL ABUSE
     Dosage: ON FIRST HOSPITALISATION
     Route: 065
     Dates: start: 2019
  4. THIAMINE. [Concomitant]
     Active Substance: THIAMINE
     Indication: PRODUCT USED FOR UNKNOWN INDICATION
     Dosage: UNKNOWN
     Route: 065
  5. CHLORDIAZEPOXIDE. [Interacting]
     Active Substance: CHLORDIAZEPOXIDE
     Dosage: DAY 11-12
     Route: 065
  6. CHLORDIAZEPOXIDE. [Interacting]
     Active Substance: CHLORDIAZEPOXIDE
     Dosage: ON SECOND HOSPITALISATION, DAY 4-5
     Route: 065
  7. PHENOBARBITAL. [Interacting]
     Active Substance: PHENOBARBITAL
     Indication: TREMOR
     Dosage: CUMULATIVE DOSE UNTIL DAY 13 WAS 1600MG.
     Route: 065

REACTIONS (6)
  - Drug interaction [Recovering/Resolving]
  - Pneumonia aspiration [Recovering/Resolving]
  - Hepatic encephalopathy [Recovering/Resolving]
  - Altered state of consciousness [Recovering/Resolving]
  - Sedation [Recovering/Resolving]
  - Overdose [Unknown]
